FAERS Safety Report 6134580-5 (Version None)
Quarter: 2009Q1

REPORT INFORMATION
  Report Type: 
  Country: None (occurrence: None)
  Receive Date: 20090327
  Receipt Date: 20090224
  Transmission Date: 20090719
  Serious: No
  Sender: FDA-Public Use
  Company Number: US-BAYER-200914978NA

PATIENT
  Age: 73 Year
  Sex: Female

DRUGS (6)
  1. CIPROFLOXACIN HCL [Suspect]
     Indication: DRUG USE FOR UNKNOWN INDICATION
  2. FOSAMAX PLUS D [Concomitant]
     Indication: OSTEOPOROSIS
     Route: 048
  3. MEDROL [Concomitant]
  4. CELEBREX [Concomitant]
  5. CRESTOR [Concomitant]
  6. AMBIEN [Concomitant]

REACTIONS (1)
  - HYPERSENSITIVITY [None]
